FAERS Safety Report 6986642-8 (Version None)
Quarter: 2010Q3

REPORT INFORMATION
  Report Type: 
  Country: None (occurrence: None)
  Receive Date: 20100915
  Receipt Date: 20090824
  Transmission Date: 20110219
  Serious: No
  Sender: FDA-Public Use
  Company Number: US-WYE-H10267609

PATIENT
  Sex: Female
  Weight: 95.34 kg

DRUGS (13)
  1. PRISTIQ [Suspect]
     Indication: DEPRESSION
     Route: 048
     Dates: start: 20090716, end: 20090716
  2. PRISTIQ [Suspect]
     Indication: INSOMNIA
  3. SYNTHROID [Concomitant]
  4. PROTONIX [Concomitant]
  5. ALDACTONE [Concomitant]
  6. DARVOCET-N 100 [Concomitant]
  7. ACETYLSALICYLIC ACID [Concomitant]
  8. SLO-MAG [Concomitant]
  9. VITAMIN B-12 [Concomitant]
  10. VITAMIN B6 [Concomitant]
  11. FOLIC ACID [Concomitant]
  12. TOPROL-XL [Concomitant]
  13. XANAX [Concomitant]

REACTIONS (1)
  - ABNORMAL DREAMS [None]
